FAERS Safety Report 18534126 (Version 1)
Quarter: 2020Q4

REPORT INFORMATION
  Report Type: Spontaneous
  Country: US (occurrence: US)
  Receive Date: 20201123
  Receipt Date: 20201123
  Transmission Date: 20210114
  Serious: Yes (Other)
  Sender: FDA-Public Use
  Company Number: None

PATIENT
  Age: 31 Year
  Sex: Male
  Weight: 61.2 kg

DRUGS (22)
  1. CERTRIZINE [Concomitant]
  2. MELATONIN [Concomitant]
     Active Substance: MELATONIN
  3. DEXAMETHASONE. [Concomitant]
     Active Substance: DEXAMETHASONE
  4. ENOXAPARIN [Concomitant]
     Active Substance: ENOXAPARIN
  5. REMDESIVIR. [Suspect]
     Active Substance: REMDESIVIR
     Indication: COVID-19
     Route: 042
  6. CODEINE-GUIFENESIN [Concomitant]
  7. EMTRICITABINE-TENOFOVIR [Concomitant]
  8. BENZONATATE. [Concomitant]
     Active Substance: BENZONATATE
  9. GUAIFENESIN. [Concomitant]
     Active Substance: GUAIFENESIN
  10. TRAMADOL. [Concomitant]
     Active Substance: TRAMADOL
  11. BIOTIN [Concomitant]
     Active Substance: BIOTIN
  12. ACETAMINOPHEN. [Concomitant]
     Active Substance: ACETAMINOPHEN
  13. CHLORASEPTIC SORE THROAT [Concomitant]
     Active Substance: PHENOL
  14. CEPACOL [Concomitant]
     Active Substance: BENZOCAINE
  15. IBUPROFEN. [Concomitant]
     Active Substance: IBUPROFEN
  16. IOPAMADOL [Concomitant]
  17. DIPHENHYDRAMINE, LIDOCAINE, AND MAAKOX MOUTHWASH [Concomitant]
  18. ONDANSETRON [Concomitant]
     Active Substance: ONDANSETRON
  19. TRAZODONE [Concomitant]
     Active Substance: TRAZODONE HYDROCHLORIDE
  20. ALBUTEROL. [Concomitant]
     Active Substance: ALBUTEROL
  21. DEXTROMETHORPHAN-BENZOCAINE [Concomitant]
  22. POLYEHTYLENE GLYCOL [Concomitant]

REACTIONS (1)
  - Liver function test increased [None]

NARRATIVE: CASE EVENT DATE: 20201118
